FAERS Safety Report 10145861 (Version 1)
Quarter: 2014Q2

REPORT INFORMATION
  Report Type: Spontaneous
  Country: US (occurrence: US)
  Receive Date: 20140501
  Receipt Date: 20140501
  Transmission Date: 20141212
  Serious: No
  Sender: FDA-Public Use
  Company Number: US-ABBVIE-13P-163-1170292-00

PATIENT
  Sex: Male

DRUGS (4)
  1. CREON [Suspect]
     Indication: PANCREATIC INSUFFICIENCY
     Route: 048
  2. CREON [Suspect]
     Indication: CYSTIC FIBROSIS
  3. CREON [Suspect]
     Indication: PANCREATIC INSUFFICIENCY
     Dosage: SWITCHED FROM 24000 TO 36000 UNITS
     Route: 048
  4. CREON [Suspect]
     Indication: CYSTIC FIBROSIS

REACTIONS (2)
  - Steatorrhoea [Unknown]
  - Weight decreased [Unknown]
